FAERS Safety Report 4267135-8 (Version None)
Quarter: 2004Q1

REPORT INFORMATION
  Report Type: 
  Country: None (occurrence: None)
  Receive Date: 20040107
  Receipt Date: 20031215
  Transmission Date: 20041129
  Serious: Yes (Death, Hospitalization)
  Sender: FDA-Public Use
  Company Number: WAES0312DEU00026

PATIENT
  Age: 35 Year
  Sex: Male

DRUGS (6)
  1. CRIXIVAN [Suspect]
     Indication: ACQUIRED IMMUNODEFICIENCY SYNDROME
     Dosage: 600 MG/TID, PO
     Route: 048
     Dates: start: 19960701, end: 19970701
  2. LAMIVUDINE [Suspect]
     Indication: HIV INFECTION
     Dosage: 150 MG/BID, PO
     Route: 048
     Dates: start: 19960701, end: 19970701
  3. STAVUDINE [Suspect]
     Indication: HIV INFECTION
     Dosage: 40 MG/BID, PO
     Route: 048
     Dates: start: 19960701, end: 19970701
  4. DIDANOSINE [Concomitant]
  5. ZALCITABINE [Concomitant]
  6. ZIDOVUDINE [Concomitant]

REACTIONS (6)
  - ASCITES [None]
  - CD4 LYMPHOCYTES DECREASED [None]
  - CHOLESTASIS [None]
  - HEPATIC CIRRHOSIS [None]
  - HEPATIC FAILURE [None]
  - HEPATITIS C [None]
